FAERS Safety Report 6186306-7 (Version None)
Quarter: 2009Q2

REPORT INFORMATION
  Report Type: 
  Country: None (occurrence: None)
  Receive Date: 20090511
  Receipt Date: 20090511
  Transmission Date: 20091009
  Serious: Yes (Hospitalization)
  Sender: FDA-Public Use
  Company Number: PHHO2005US15707

PATIENT
  Sex: Male
  Weight: 77.7 kg

DRUGS (4)
  1. CIBADREX T29368+ [Suspect]
     Dosage: LEVEL 1
     Route: 048
     Dates: start: 20050405
  2. CIBADREX T29368+ [Suspect]
     Dosage: LEVEL 2
     Route: 048
  3. TERAZOSIN HCL [Concomitant]
     Indication: BENIGN PROSTATIC HYPERPLASIA
     Dosage: 1 TABLET, QD
     Route: 048
     Dates: start: 20021206, end: 20050925
  4. LASIX [Concomitant]
     Indication: OEDEMA
     Dosage: 1 TABLET, QD
     Route: 048
     Dates: start: 20030101, end: 20050925

REACTIONS (2)
  - DIZZINESS [None]
  - LOSS OF CONSCIOUSNESS [None]
